FAERS Safety Report 6742407-3 (Version None)
Quarter: 2010Q2

REPORT INFORMATION
  Report Type: 
  Country: None (occurrence: None)
  Receive Date: 20100524
  Receipt Date: 20100510
  Transmission Date: 20101027
  Serious: Yes (Hospitalization)
  Sender: FDA-Public Use
  Company Number: BCN-AS-2010-RR-108

PATIENT
  Age: 13 Year
  Sex: Male

DRUGS (1)
  1. AMOXICILLIN AND CLAVULANATE POTASSIUM [Suspect]
     Dosage: 500 MG, ORAL
     Route: 048

REACTIONS (2)
  - KOUNIS SYNDROME [None]
  - VENTRICULAR HYPOKINESIA [None]
